FAERS Safety Report 25028985 (Version 1)
Quarter: 2025Q1

REPORT INFORMATION
  Report Type: Spontaneous
  Country: US (occurrence: US)
  Receive Date: 20250303
  Receipt Date: 20250303
  Transmission Date: 20250409
  Serious: Yes (Other)
  Sender: COLLEGIUM PHARMACEUTICAL
  Company Number: US-COLLEGIUM PHARMACEUTICAL, INC.-20250201768

PATIENT

DRUGS (3)
  1. JORNAY PM EXTENDED-RELEASE [Suspect]
     Active Substance: METHYLPHENIDATE HYDROCHLORIDE
     Indication: Attention deficit hyperactivity disorder
     Route: 065
     Dates: start: 20250108
  2. JORNAY PM EXTENDED-RELEASE [Suspect]
     Active Substance: METHYLPHENIDATE HYDROCHLORIDE
     Route: 065
     Dates: start: 20250115
  3. JORNAY PM EXTENDED-RELEASE [Suspect]
     Active Substance: METHYLPHENIDATE HYDROCHLORIDE
     Route: 065
     Dates: start: 20250120

REACTIONS (7)
  - Self-destructive behaviour [Recovered/Resolved]
  - Suicide attempt [Recovered/Resolved]
  - Rhabdomyolysis [Recovered/Resolved]
  - Abnormal behaviour [Recovered/Resolved]
  - Blood creatine phosphokinase increased [Unknown]
  - Concussion [Unknown]
  - Anxiety [Unknown]

NARRATIVE: CASE EVENT DATE: 20250127
